FAERS Safety Report 13589279 (Version 1)
Quarter: 2017Q2

REPORT INFORMATION
  Report Type: Report from Study
  Country: US (occurrence: US)
  Receive Date: 20170529
  Receipt Date: 20170529
  Transmission Date: 20170830
  Serious: No
  Sender: FDA-Public Use
  Company Number: PHEH2017US015621

PATIENT
  Sex: Male

DRUGS (1)
  1. COSENTYX [Suspect]
     Active Substance: SECUKINUMAB
     Indication: PRODUCT USED FOR UNKNOWN INDICATION
     Dosage: 150 MG, BIW
     Route: 065

REACTIONS (6)
  - Dyspepsia [Unknown]
  - Condition aggravated [Not Recovered/Not Resolved]
  - Insomnia [Unknown]
  - Stress [Unknown]
  - Fatigue [Unknown]
  - Inappropriate schedule of drug administration [Unknown]
